FAERS Safety Report 25281691 (Version 1)
Quarter: 2025Q2

REPORT INFORMATION
  Report Type: Report from Study
  Country: US (occurrence: US)
  Receive Date: 20250508
  Receipt Date: 20250508
  Transmission Date: 20250717
  Serious: Yes (Other)
  Sender: ROCHE
  Company Number: US-ROCHE-10000277411

PATIENT
  Age: 88 Year
  Sex: Female
  Weight: 54.43 kg

DRUGS (13)
  1. VABYSMO [Suspect]
     Active Substance: FARICIMAB-SVOA
     Indication: Neovascular age-related macular degeneration
     Dosage: STARTED MAYBE 1 YEAR AGO.
     Route: 050
  2. VABYSMO [Suspect]
     Active Substance: FARICIMAB-SVOA
     Route: 050
  3. VABYSMO [Suspect]
     Active Substance: FARICIMAB-SVOA
     Route: 050
     Dates: end: 202501
  4. AVASTIN [Suspect]
     Active Substance: BEVACIZUMAB
     Indication: Neovascular age-related macular degeneration
     Dosage: STARTED 6 YEARS AGO. GOT MEDICATION BOTH EYES. STOPPED ABOUT 1 YEAR AGO.
     Route: 050
  5. AVASTIN [Suspect]
     Active Substance: BEVACIZUMAB
     Indication: Neovascular age-related macular degeneration
     Dosage: RESTARTED AVASTIN.
     Route: 050
     Dates: start: 202501
  6. EYLEA [Concomitant]
     Active Substance: AFLIBERCEPT
     Indication: Neovascular age-related macular degeneration
     Dosage: STARTED MAYBE 1 YEAR AGO.
     Route: 050
  7. EYLEA [Concomitant]
     Active Substance: AFLIBERCEPT
     Route: 050
  8. EYLEA [Concomitant]
     Active Substance: AFLIBERCEPT
     Route: 050
     Dates: end: 202501
  9. ATORVASTATIN [Concomitant]
     Active Substance: ATORVASTATIN
     Indication: Blood cholesterol increased
     Dosage: STARTED AT LEAST 30 YEARS AGO.
     Route: 048
  10. AMLODIPINE [Concomitant]
     Active Substance: AMLODIPINE BESYLATE
     Indication: Hypertension
     Dosage: STARTED ABOUT 30 YEARS AGO.
     Route: 048
  11. ASPIRIN [Concomitant]
     Active Substance: ASPIRIN
     Indication: Transient ischaemic attack
     Dosage: STARTED 30 YEARS AGO.
     Route: 048
  12. MINERALS\VITAMINS [Concomitant]
     Active Substance: MINERALS\VITAMINS
     Indication: Neovascular age-related macular degeneration
     Dosage: TAKES IN THE MORNING AND AT SUPPER TIME.  STARTED ABOUT 6 YEARS AGO.
     Route: 048
  13. MINERALS\VITAMINS [Concomitant]
     Active Substance: MINERALS\VITAMINS
     Indication: Neovascular age-related macular degeneration

REACTIONS (3)
  - Neovascular age-related macular degeneration [Not Recovered/Not Resolved]
  - Off label use [Unknown]
  - Off label use [Unknown]
